FAERS Safety Report 8101607-0 (Version None)
Quarter: 2012Q1

REPORT INFORMATION
  Report Type: 
  Country: None (occurrence: None)
  Receive Date: 20120129
  Receipt Date: 20110923
  Transmission Date: 20120608
  Serious: No
  Sender: FDA-Public Use
  Company Number: US-ABBOTT-11P-163-0858598-00

PATIENT
  Sex: Female
  Weight: 71.732 kg

DRUGS (6)
  1. HUMIRA [Suspect]
     Indication: PSORIATIC ARTHROPATHY
     Route: 058
     Dates: start: 20110701, end: 20110901
  2. UNKNOWN BLOOD PRESSURE MED [Concomitant]
     Indication: HYPERTENSION
  3. FISH OIL [Concomitant]
     Indication: SUPPLEMENTATION THERAPY
  4. TOPRICIN [Concomitant]
     Indication: PAIN
     Route: 061
  5. VITAMIN D [Concomitant]
     Indication: VITAMIN SUPPLEMENTATION
  6. HUMIRA [Suspect]
     Indication: PSORIATIC ARTHROPATHY
     Route: 058
     Dates: start: 20110922

REACTIONS (2)
  - INJECTION SITE HAEMATOMA [None]
  - INJECTION SITE PAIN [None]
